FAERS Safety Report 7304545-6 (Version None)
Quarter: 2011Q1

REPORT INFORMATION
  Report Type: 
  Country: None (occurrence: None)
  Receive Date: 20110222
  Receipt Date: 20101028
  Transmission Date: 20110831
  Serious: Yes (Hospitalization, Other)
  Sender: FDA-Public Use
  Company Number: PHHY2010US73105

PATIENT
  Sex: Female

DRUGS (11)
  1. SUCRALFATE [Concomitant]
  2. INSULIN [Concomitant]
  3. BLOOD TRANSFUSION, AUXILIARY PRODUCTS [Concomitant]
     Dosage: UNK
  4. DANAZOL [Concomitant]
     Dosage: UNK
  5. ALPRAZOLAM [Concomitant]
  6. DULOXETINE [Concomitant]
  7. PROCRIT [Concomitant]
     Dosage: UNK
  8. PNEUMOVAX 23 [Concomitant]
  9. RED BLOOD CELLS, CONCENTRATED [Concomitant]
     Dosage: UNK
  10. EXJADE [Suspect]
     Indication: SERUM FERRITIN INCREASED
     Dosage: 2000 MG, QD
     Route: 048
  11. OMEPRAZOLE [Concomitant]

REACTIONS (17)
  - HAEMOSIDEROSIS [None]
  - ALANINE AMINOTRANSFERASE INCREASED [None]
  - RENAL FAILURE [None]
  - HEPATIC ENZYME INCREASED [None]
  - ASPARTATE AMINOTRANSFERASE DECREASED [None]
  - BLOOD BILIRUBIN INCREASED [None]
  - HAEMOCHROMATOSIS [None]
  - HYPERTENSION [None]
  - MARROW HYPERPLASIA [None]
  - BLOOD LACTATE DEHYDROGENASE INCREASED [None]
  - BLOOD CREATININE INCREASED [None]
  - GASTROINTESTINAL HAEMORRHAGE [None]
  - GASTRITIS [None]
  - ANAEMIA [None]
  - BLOOD UREA INCREASED [None]
  - OCCULT BLOOD POSITIVE [None]
  - ERYTHROID MATURATION ARREST [None]
